FAERS Safety Report 6622510-9 (Version None)
Quarter: 2010Q1

REPORT INFORMATION
  Report Type: 
  Country: None (occurrence: None)
  Receive Date: 20100310
  Receipt Date: 20100203
  Transmission Date: 20100710
  Serious: No
  Sender: FDA-Public Use
  Company Number: US-BIOGENIDEC-2010BI003684

PATIENT
  Age: 46 Year
  Sex: Female

DRUGS (2)
  1. AVONEX [Suspect]
     Indication: MULTIPLE SCLEROSIS
     Route: 030
     Dates: start: 20100126, end: 20100202
  2. AVONEX [Suspect]
     Route: 030
     Dates: start: 20100202

REACTIONS (13)
  - ABDOMINAL PAIN UPPER [None]
  - BONE PAIN [None]
  - CHEST PAIN [None]
  - CRYING [None]
  - DIARRHOEA [None]
  - DRY THROAT [None]
  - EAR PAIN [None]
  - GAIT DISTURBANCE [None]
  - INFLUENZA LIKE ILLNESS [None]
  - NEURALGIA [None]
  - OROPHARYNGEAL PAIN [None]
  - RHINORRHOEA [None]
  - TREMOR [None]
